FAERS Safety Report 8001067-4 (Version None)
Quarter: 2011Q4

REPORT INFORMATION
  Report Type: 
  Country: None (occurrence: None)
  Receive Date: 20111222
  Receipt Date: 20111215
  Transmission Date: 20120403
  Serious: Yes (Death)
  Sender: FDA-Public Use
  Company Number: GB-NAPPMUNDI-GBR-2009-0005783

PATIENT
  Sex: Male
  Weight: 69 kg

DRUGS (10)
  1. MS CONTIN [Suspect]
     Indication: PAIN
     Dosage: 20 MG, BID
     Route: 048
     Dates: start: 20060117
  2. TRILEPTAL [Concomitant]
     Dosage: 300 MG, BID
  3. BUPRENORPHINE [Concomitant]
     Indication: PRODUCT USED FOR UNKNOWN INDICATION
     Route: 062
  4. BENZODIAZEPINE DERIVATIVES [Concomitant]
     Dosage: UNK UNK, UNK
     Route: 048
  5. EPANUTIN                           /00017401/ [Concomitant]
     Dosage: 200 MG, BID
  6. PROZAC [Concomitant]
     Dosage: 60 MG, DAILY
  7. MORPHINE SULFATE [Suspect]
     Indication: PAIN
     Dosage: 80 MG, DAILY
     Route: 048
  8. CLOBAZAM [Suspect]
     Indication: CONVULSION
     Dosage: 20 MG, BID
     Route: 065
  9. ZANAFLEX [Concomitant]
  10. TEMAZEPAM [Concomitant]
     Dosage: 20 MG, DAILY

REACTIONS (4)
  - RESPIRATORY ARREST [None]
  - ACCIDENTAL OVERDOSE [None]
  - TOXICITY TO VARIOUS AGENTS [None]
  - EPILEPSY [None]
